FAERS Safety Report 10675977 (Version 1)
Quarter: 2014Q4

REPORT INFORMATION
  Report Type: Spontaneous
  Country: US (occurrence: US)
  Receive Date: 20141225
  Receipt Date: 20141225
  Transmission Date: 20150529
  Serious: Yes (Other)
  Sender: FDA-Public Use
  Company Number: US-JNJFOC-20141214861

PATIENT

DRUGS (1)
  1. DIPHENHYDRAMINE [Suspect]
     Active Substance: DIPHENHYDRAMINE
     Indication: INSOMNIA
     Route: 065
     Dates: start: 2013

REACTIONS (5)
  - Agitation [Unknown]
  - Delirium [Unknown]
  - Fall [Unknown]
  - Mental status changes [Unknown]
  - Product use issue [Unknown]
